FAERS Safety Report 10610664 (Version 2)
Quarter: 2014Q4

REPORT INFORMATION
  Report Type: Report from Study
  Country: NL (occurrence: NL)
  Receive Date: 20141126
  Receipt Date: 20141126
  Transmission Date: 20150529
  Serious: Yes (Other)
  Sender: FDA-Public Use
  Company Number: NL-ABBVIE-12P-114-0951962-00

PATIENT
  Age: 79 Year
  Sex: Male
  Weight: 85 kg

DRUGS (5)
  1. CHEMOTHERAPY [Concomitant]
     Active Substance: UNSPECIFIED INGREDIENT
     Indication: METASTASES TO LYMPH NODES
  2. CHEMOTHERAPY [Concomitant]
     Active Substance: UNSPECIFIED INGREDIENT
     Indication: METASTASES TO LUNG
  3. LUCRIN DEPOT 11.25 MG [Suspect]
     Active Substance: LEUPROLIDE ACETATE
     Indication: PROSTATE CANCER
     Route: 058
     Dates: start: 20120302, end: 20131206
  4. BICALUTAMIDE. [Concomitant]
     Active Substance: BICALUTAMIDE
     Indication: PROSTATE CANCER
     Route: 048
     Dates: start: 20121213
  5. LUPRON DEPOT [Suspect]
     Active Substance: LEUPROLIDE ACETATE
     Indication: PROSTATE CANCER
     Route: 058
     Dates: start: 20130612

REACTIONS (12)
  - Eczema [Not Recovered/Not Resolved]
  - Injection site reaction [Unknown]
  - Hot flush [Not Recovered/Not Resolved]
  - Rash [Not Recovered/Not Resolved]
  - Metastases to lung [Not Recovered/Not Resolved]
  - Rash pruritic [Not Recovered/Not Resolved]
  - Metastases to lymph nodes [Not Recovered/Not Resolved]
  - Metastases to bone [Not Recovered/Not Resolved]
  - Abdominal distension [Not Recovered/Not Resolved]
  - Peripheral swelling [Unknown]
  - Skin reaction [Not Recovered/Not Resolved]
  - Flatulence [Not Recovered/Not Resolved]

NARRATIVE: CASE EVENT DATE: 2012
